FAERS Safety Report 21255290 (Version 1)
Quarter: 2022Q3

REPORT INFORMATION
  Report Type: Spontaneous
  Country: ES (occurrence: ES)
  Receive Date: 20220825
  Receipt Date: 20220825
  Transmission Date: 20221027
  Serious: Yes (Other)
  Sender: FDA-Public Use
  Company Number: ES-NOVARTISPH-NVSC2022ES183819

PATIENT
  Age: 14 Year
  Sex: Female

DRUGS (3)
  1. ADALIMUMAB [Suspect]
     Active Substance: ADALIMUMAB
     Indication: Crohn^s disease
     Dosage: UNK
     Route: 065
     Dates: start: 202005
  2. ADALIMUMAB [Suspect]
     Active Substance: ADALIMUMAB
     Indication: Chronic recurrent multifocal osteomyelitis
  3. USTEKINUMAB [Concomitant]
     Active Substance: USTEKINUMAB
     Indication: Crohn^s disease
     Dosage: UNK
     Route: 065
     Dates: start: 202006

REACTIONS (5)
  - Chronic recurrent multifocal osteomyelitis [Recovered/Resolved]
  - Condition aggravated [Unknown]
  - Rebound effect [Unknown]
  - Off label use [Unknown]
  - Therapeutic product effect incomplete [Unknown]
